FAERS Safety Report 14155896 (Version 1)
Quarter: 2017Q4

REPORT INFORMATION
  Report Type: Report from Study
  Country: US (occurrence: US)
  Receive Date: 20171103
  Receipt Date: 20171103
  Transmission Date: 20180321
  Serious: Yes (Hospitalization)
  Sender: FDA-Public Use
  Company Number: US-PFIZER INC-2017411627

PATIENT
  Age: 58 Year
  Sex: Female

DRUGS (1)
  1. IBRANCE [Suspect]
     Active Substance: PALBOCICLIB
     Indication: BREAST CANCER
     Dosage: 100 MG, CYCLIC (DAILY/3 WEEKS ON, 1 WEEK OFF)
     Route: 048
     Dates: start: 20170911

REACTIONS (8)
  - Sinusitis [Recovered/Resolved]
  - Drug dose omission [Unknown]
  - White blood cell count decreased [Unknown]
  - Fatigue [Unknown]
  - Condition aggravated [Unknown]
  - Fluid retention [Recovered/Resolved]
  - Peripheral swelling [Unknown]
  - Condition aggravated [Unknown]

NARRATIVE: CASE EVENT DATE: 2017
